FAERS Safety Report 9816087 (Version 1)
Quarter: 2014Q1

REPORT INFORMATION
  Report Type: Spontaneous
  Country: US (occurrence: US)
  Receive Date: 20140114
  Receipt Date: 20140114
  Transmission Date: 20141002
  Serious: Yes (Death)
  Sender: FDA-Public Use
  Company Number: US-PFIZER INC-2014006828

PATIENT
  Age: 40 Year
  Sex: Male

DRUGS (7)
  1. DOXEPIN HCL [Suspect]
     Route: 048
  2. TRIHEXYPHENIDYL [Suspect]
     Route: 048
  3. MORPHINE SULFATE [Suspect]
     Dosage: UNK
     Route: 048
  4. HEROIN [Suspect]
     Route: 048
  5. COCAINE [Suspect]
     Dosage: UNK
     Route: 048
  6. CLONAZEPAM [Suspect]
     Dosage: UNK
     Route: 048
  7. DIPHENHYDRAMINE [Suspect]
     Route: 048

REACTIONS (3)
  - Completed suicide [Fatal]
  - Cardiac arrest [Fatal]
  - Respiratory arrest [Fatal]
